FAERS Safety Report 23303958 (Version 5)
Quarter: 2025Q1

REPORT INFORMATION
  Report Type: Spontaneous
  Country: US (occurrence: US)
  Receive Date: 20231215
  Receipt Date: 20250306
  Transmission Date: 20250409
  Serious: No
  Sender: PFIZER
  Company Number: US-PFIZER INC-PV202300198065

PATIENT
  Age: 70 Year
  Sex: Female

DRUGS (2)
  1. IBRANCE [Suspect]
     Active Substance: PALBOCICLIB
     Indication: Breast cancer female
     Route: 048
  2. IBRANCE [Suspect]
     Active Substance: PALBOCICLIB
     Route: 048

REACTIONS (2)
  - Mental disorder [Unknown]
  - Speech disorder [Unknown]
